FAERS Safety Report 6238523-5 (Version None)
Quarter: 2009Q2

REPORT INFORMATION
  Report Type: 
  Country: None (occurrence: None)
  Receive Date: 20090622
  Receipt Date: 20090615
  Transmission Date: 20091009
  Serious: Yes (Hospitalization, Other)
  Sender: FDA-Public Use
  Company Number: BR-ROXANE LABORATORIES, INC.-2009-RO-00584RO

PATIENT
  Age: 35 Year
  Sex: Female

DRUGS (7)
  1. PREDNISONE [Suspect]
     Indication: LEUKOCYTOCLASTIC VASCULITIS
     Dosage: 5 MG
  2. PREDNISONE [Suspect]
     Dosage: 60 MG
  3. PREDNISONE [Suspect]
     Dosage: 40 MG
  4. PREDNISONE [Suspect]
     Route: 048
  5. METHYLPREDNISOLONE [Suspect]
     Indication: LEUKOCYTOCLASTIC VASCULITIS
     Route: 042
  6. GANCICLOVIR [Suspect]
     Indication: CYTOMEGALOVIRUS CHORIORETINITIS
  7. ANTIBIOTICOTHERAPY [Suspect]
     Indication: CYTOMEGALOVIRUS CHORIORETINITIS

REACTIONS (5)
  - BACTERIAL INFECTION [None]
  - CYTOMEGALOVIRUS CHORIORETINITIS [None]
  - DRUG INEFFECTIVE [None]
  - GLAUCOMA [None]
  - SEPSIS [None]
